FAERS Safety Report 22233143 (Version 1)
Quarter: 2023Q2

REPORT INFORMATION
  Report Type: Spontaneous
  Country: US (occurrence: US)
  Receive Date: 20230420
  Receipt Date: 20230420
  Transmission Date: 20230721
  Serious: No
  Sender: FDA-Public Use
  Company Number: US-INCYTE CORPORATION-2023IN003801

PATIENT

DRUGS (4)
  1. JAKAFI [Suspect]
     Active Substance: RUXOLITINIB
     Indication: Myeloproliferative neoplasm
     Dosage: 10 MILLIGRAM, BID, 1 IN THE MORNING AND 1 TABLET IN THE EVENING
     Route: 048
     Dates: start: 202212
  2. JAKAFI [Suspect]
     Active Substance: RUXOLITINIB
     Indication: Arthritis
  3. JAKAFI [Suspect]
     Active Substance: RUXOLITINIB
     Indication: Hyperlipidaemia
  4. JAKAFI [Suspect]
     Active Substance: RUXOLITINIB
     Indication: Depression

REACTIONS (4)
  - Tooth disorder [Unknown]
  - Pain [Unknown]
  - Impaired healing [Unknown]
  - Off label use [Unknown]

NARRATIVE: CASE EVENT DATE: 20221201
